FAERS Safety Report 22344151 (Version 1)
Quarter: 2023Q2

REPORT INFORMATION
  Report Type: Spontaneous
  Country: US (occurrence: None)
  Receive Date: 20230518
  Receipt Date: 20230518
  Transmission Date: 20230721
  Serious: Yes (Hospitalization)
  Sender: FDA-Public Use
  Company Number: None

PATIENT
  Age: 77 Year
  Sex: Female
  Weight: 75.6 kg

DRUGS (12)
  1. PENICILLIN V POTASSIUM [Suspect]
     Active Substance: PENICILLIN V POTASSIUM
     Dosage: OTHER QUANTITY : 1 TABLET(S);?FREQUENCY : EVERY 6 HOURS;?
     Route: 048
     Dates: start: 20230417, end: 20230417
  2. SYNTHROID [Concomitant]
     Active Substance: LEVOTHYROXINE SODIUM
  3. LIOTHYRONINE [Concomitant]
  4. Prevastatin [Concomitant]
  5. METOPROLOL [Concomitant]
  6. ELIQUIS [Concomitant]
     Active Substance: APIXABAN
  7. Multi vit D3 [Concomitant]
  8. Co Q 10 [Concomitant]
  9. Turmeric [Concomitant]
  10. OMEPRAZOLE [Concomitant]
  11. FIBER [Concomitant]
  12. PROBIOTICS NOS [Concomitant]
     Active Substance: PROBIOTICS NOS

REACTIONS (4)
  - Burning sensation [None]
  - Pruritus [None]
  - Heart rate increased [None]
  - Loss of consciousness [None]

NARRATIVE: CASE EVENT DATE: 20230417
